FAERS Safety Report 6312848-7 (Version None)
Quarter: 2009Q3

REPORT INFORMATION
  Report Type: 
  Country: None (occurrence: None)
  Receive Date: 20090818
  Receipt Date: 20090810
  Transmission Date: 20100115
  Serious: Yes (Other)
  Sender: FDA-Public Use
  Company Number: BR-JNJFOC-20090804245

PATIENT
  Age: 33 Year
  Sex: Female
  Weight: 54 kg

DRUGS (2)
  1. ORTHO EVRA [Suspect]
     Indication: CONTRACEPTION
     Dosage: NORELGESTROMIN 6 MG/ ETHINYESTRADIOL 0.6 MG
     Route: 062
  2. AZITHROMYCIN [Interacting]
     Indication: LARYNGITIS
     Route: 065

REACTIONS (5)
  - DRUG INTERACTION [None]
  - INAPPROPRIATE SCHEDULE OF DRUG ADMINISTRATION [None]
  - LARYNGITIS [None]
  - PRODUCT QUALITY ISSUE [None]
  - WRONG TECHNIQUE IN DRUG USAGE PROCESS [None]
